FAERS Safety Report 14178199 (Version 1)
Quarter: 2017Q4

REPORT INFORMATION
  Report Type: Spontaneous
  Country: CN (occurrence: CN)
  Receive Date: 20171110
  Receipt Date: 20171110
  Transmission Date: 20180321
  Serious: Yes (Other)
  Sender: FDA-Public Use
  Company Number: CN-BAYER-2017-212702

PATIENT
  Age: 2 Year
  Sex: Female
  Weight: 80 kg

DRUGS (2)
  1. AVELOX [Suspect]
     Active Substance: MOXIFLOXACIN HYDROCHLORIDE
     Indication: INFECTION
     Dosage: 0.4 G, QD
     Route: 041
     Dates: start: 20170817, end: 20170817
  2. TAZOBAC [PIPERACILLIN SODIUM,TAZOBACTAM SODIUM] [Suspect]
     Active Substance: PIPERACILLIN SODIUM\TAZOBACTAM SODIUM
     Indication: INFECTION
     Dosage: 4.5 G, QD
     Route: 041
     Dates: start: 20170817, end: 20170817

REACTIONS (9)
  - Cyanosis [Recovering/Resolving]
  - Panic reaction [Recovering/Resolving]
  - Dysphoria [Recovering/Resolving]
  - Dyspnoea [Recovering/Resolving]
  - Pain [Recovering/Resolving]
  - Chills [Recovering/Resolving]
  - Peripheral coldness [Recovering/Resolving]
  - Tremor [Recovering/Resolving]
  - Aphasia [Recovering/Resolving]

NARRATIVE: CASE EVENT DATE: 20170817
